FAERS Safety Report 14911932 (Version 1)
Quarter: 2018Q2

REPORT INFORMATION
  Report Type: Spontaneous
  Country: US (occurrence: US)
  Receive Date: 20180430
  Receipt Date: 20180430
  Transmission Date: 20180711
  Serious: No
  Sender: FDA-Public Use
  Company Number: None

PATIENT
  Age: 65 Year
  Sex: Male

DRUGS (1)
  1. ZYTIGA [Suspect]
     Active Substance: ABIRATERONE ACETATE

REACTIONS (9)
  - Dyspnoea [None]
  - Insomnia [None]
  - Loss of personal independence in daily activities [None]
  - Impaired healing [None]
  - Fatigue [None]
  - Blood pressure increased [None]
  - Blood glucose increased [None]
  - Joint swelling [None]
  - Nausea [None]

NARRATIVE: CASE EVENT DATE: 20180430
